FAERS Safety Report 15674569 (Version 1)
Quarter: 2018Q4

REPORT INFORMATION
  Report Type: Spontaneous
  Country: FR (occurrence: FR)
  Receive Date: 20181130
  Receipt Date: 20181130
  Transmission Date: 20190205
  Serious: Yes (Hospitalization)
  Sender: FDA-Public Use
  Company Number: FR-TEVA-2018-FR-980720

PATIENT
  Age: 41 Year
  Sex: Female
  Weight: 59 kg

DRUGS (3)
  1. BLEOMYCINE BELLON 15 MG, POUDRE POUR SOLUTION INJECTABLE [Suspect]
     Active Substance: BLEOMYCIN SULFATE
     Indication: OVARIAN CANCER
     Route: 042
     Dates: start: 20181008
  2. ETOPOSIDE TEVA [Suspect]
     Active Substance: ETOPOSIDE
     Indication: OVARIAN CANCER
     Route: 042
     Dates: start: 20181008
  3. CISPLATINE MYLAN [Suspect]
     Active Substance: CISPLATIN
     Indication: OVARIAN CANCER
     Route: 042
     Dates: start: 20181008

REACTIONS (2)
  - Cholestasis [Not Recovered/Not Resolved]
  - Hepatocellular injury [Not Recovered/Not Resolved]

NARRATIVE: CASE EVENT DATE: 20181029
